FAERS Safety Report 8016631-6 (Version None)
Quarter: 2011Q4

REPORT INFORMATION
  Report Type: 
  Country: None (occurrence: None)
  Receive Date: 20111231
  Receipt Date: 20111223
  Transmission Date: 20120403
  Serious: Yes (Other)
  Sender: FDA-Public Use
  Company Number: PHHY2011FR112050

PATIENT
  Age: 36 Year
  Sex: Female

DRUGS (4)
  1. OLANZAPINE [Interacting]
     Dosage: 10 MG/DAY
  2. VALPROIC ACID [Interacting]
     Dosage: 1500 MG/DAY
  3. VALPROIC ACID [Interacting]
     Dosage: 1000 MG/DAY
  4. DIAZEPAM [Suspect]
     Indication: AGITATION
     Dosage: 30 MG/DAY

REACTIONS (5)
  - DRUG INTERACTION [None]
  - ENCEPHALOPATHY [None]
  - COMA [None]
  - UNRESPONSIVE TO STIMULI [None]
  - SOMNOLENCE [None]
